FAERS Safety Report 6153470-5 (Version None)
Quarter: 2009Q2

REPORT INFORMATION
  Report Type: 
  Country: None (occurrence: None)
  Receive Date: 20090409
  Receipt Date: 20090409
  Transmission Date: 20091009
  Serious: No
  Sender: FDA-Public Use
  Company Number: None

PATIENT
  Sex: Male
  Weight: 65.7716 kg

DRUGS (1)
  1. ADVAIR DISKUS 250/50 [Suspect]
     Dosage: 1 PUFF/BLISTER TWICE DAY

REACTIONS (6)
  - BURNING SENSATION [None]
  - INCORRECT DOSE ADMINISTERED [None]
  - LUNG DISORDER [None]
  - ORAL DISCOMFORT [None]
  - ORAL PAIN [None]
  - THROAT IRRITATION [None]
